FAERS Safety Report 5873742-9 (Version None)
Quarter: 2008Q3

REPORT INFORMATION
  Report Type: 
  Country: None (occurrence: None)
  Receive Date: 20080903
  Receipt Date: 20080821
  Transmission Date: 20090109
  Serious: Yes (Hospitalization, Other)
  Sender: FDA-Public Use
  Company Number: 2006-01153

PATIENT
  Age: 59 Year
  Sex: Male
  Weight: 65.5 kg

DRUGS (18)
  1. VELCADE [Suspect]
     Indication: MULTIPLE MYELOMA
     Dosage: 2.40 MG, INTRAVENOUS
     Route: 042
     Dates: start: 20060425, end: 20060505
  2. CYCLOPHOSPHAMIDE [Suspect]
     Indication: MULTIPLE MYELOMA
     Dosage: 2800.00 MG, INTRAVENOUS
     Route: 042
     Dates: start: 20060425, end: 20060505
  3. DEXAMETHASONE TAB [Suspect]
     Indication: MULTIPLE MYELOMA
     Dosage: 40 MG,
     Dates: start: 20060503, end: 20060506
  4. ACETYLSALICYLIC ACID SRT [Concomitant]
  5. ATORVASTATIN CALCIUM [Concomitant]
  6. RAMIPRIL [Concomitant]
  7. POTASSIUM (POTASSIUM) [Concomitant]
  8. RANITIDINE HCL [Concomitant]
  9. VALERIAN ROOT (VALERIANA OFFICINALIS ROOT) [Concomitant]
  10. BENZBROMARONE (BENZBROMARONE) [Concomitant]
  11. ESIDRIX [Concomitant]
  12. ENOXAPARIN SODIUM [Concomitant]
  13. PANTOPRAZOLE SODIUM [Concomitant]
  14. TEMAZEPAM [Concomitant]
  15. FENTANYL ^JANSSEN^ (FENTANYL CITRATE) [Concomitant]
  16. NIFEDIPINE [Concomitant]
  17. FUROSEMIDE [Concomitant]
  18. LACTULOSE (LACTULOSE) SOLUTION (EXCEPT SYRUP) [Concomitant]

REACTIONS (3)
  - LEUKOPENIA [None]
  - THROMBOCYTOPENIA [None]
  - URETHRAL HAEMORRHAGE [None]
